FAERS Safety Report 6757000-6 (Version None)
Quarter: 2010Q2

REPORT INFORMATION
  Report Type: 
  Country: None (occurrence: None)
  Receive Date: 20100604
  Receipt Date: 20100527
  Transmission Date: 20101027
  Serious: Yes (Hospitalization, Other)
  Sender: FDA-Public Use
  Company Number: CA-ABBOTT-10P-028-0647750-00

PATIENT
  Sex: Female
  Weight: 42.222 kg

DRUGS (1)
  1. HUMIRA [Suspect]
     Indication: CROHN'S DISEASE
     Route: 058
     Dates: start: 20070521, end: 20091117

REACTIONS (3)
  - INCISION SITE ABSCESS [None]
  - INCISION SITE INFECTION [None]
  - INTESTINAL ANASTOMOSIS [None]
